FAERS Safety Report 5464951-1 (Version None)
Quarter: 2007Q3

REPORT INFORMATION
  Report Type: 
  Country: None (occurrence: None)
  Receive Date: 20070921
  Receipt Date: 20070913
  Transmission Date: 20080115
  Serious: Yes (Other)
  Sender: FDA-Public Use
  Company Number: FR-PFIZER INC-2007076988

PATIENT
  Sex: Male

DRUGS (1)
  1. TAHOR [Suspect]

REACTIONS (2)
  - LOCAL SWELLING [None]
  - SWELLING [None]
